FAERS Safety Report 4560152-X (Version None)
Quarter: 2005Q1

REPORT INFORMATION
  Report Type: 
  Country: None (occurrence: None)
  Receive Date: 20050125
  Receipt Date: 20050114
  Transmission Date: 20050727
  Serious: Yes (Life-Threatening, Hospitalization, Disabling, Other)
  Sender: FDA-Public Use
  Company Number: US-ABBOTT-05P-163-0286943-00

PATIENT
  Sex: Female

DRUGS (4)
  1. DEPAKOTE [Suspect]
     Indication: BIPOLAR DISORDER
     Route: 065
     Dates: start: 20040301
  2. DEPAKOTE [Interacting]
     Route: 065
     Dates: start: 20040301, end: 20040301
  3. LAMOTRIGINE [Interacting]
     Indication: BIPOLAR DISORDER
     Route: 048
     Dates: start: 20040406, end: 20040413
  4. LAMOTRIGINE [Interacting]
     Route: 048
     Dates: start: 20040301

REACTIONS (20)
  - ALANINE AMINOTRANSFERASE INCREASED [None]
  - ASPARTATE AMINOTRANSFERASE INCREASED [None]
  - ATELECTASIS [None]
  - BREATH SOUNDS DECREASED [None]
  - CHILLS [None]
  - DRUG INTERACTION [None]
  - HEADACHE [None]
  - HYPERSENSITIVITY [None]
  - HYPERTHERMIA [None]
  - LIVER FUNCTION TEST ABNORMAL [None]
  - MENINGITIS VIRAL [None]
  - MYALGIA [None]
  - NECK PAIN [None]
  - PAIN [None]
  - PHARYNGOLARYNGEAL PAIN [None]
  - PLATELET COUNT INCREASED [None]
  - RASH MACULO-PAPULAR [None]
  - RESPIRATORY DISORDER [None]
  - RHINORRHOEA [None]
  - TACHYCARDIA [None]
